FAERS Safety Report 9121105 (Version 1)
Quarter: 2013Q1

REPORT INFORMATION
  Report Type: Spontaneous
  Country: JP (occurrence: JP)
  Receive Date: 20130226
  Receipt Date: 20130226
  Transmission Date: 20140127
  Serious: Yes (Other)
  Sender: FDA-Public Use
  Company Number: JP-ASTRAZENECA-2013SE12380

PATIENT
  Sex: 0

DRUGS (1)
  1. BLOPRESS [Suspect]
     Route: 048

REACTIONS (1)
  - Tendon rupture [Unknown]
